FAERS Safety Report 7747259-0 (Version None)
Quarter: 2011Q3

REPORT INFORMATION
  Report Type: 
  Country: None (occurrence: None)
  Receive Date: 20110913
  Receipt Date: 20110909
  Transmission Date: 20111222
  Serious: Yes (Other)
  Sender: FDA-Public Use
  Company Number: JP-PFIZER INC-2011213123

PATIENT

DRUGS (1)
  1. CABERGOLINE [Suspect]
     Dosage: UNK

REACTIONS (2)
  - BLOOD INSULIN INCREASED [None]
  - HYPOGLYCAEMIA [None]
